FAERS Safety Report 16670096 (Version 1)
Quarter: 2019Q3

REPORT INFORMATION
  Report Type: Spontaneous
  Country: US (occurrence: US)
  Receive Date: 20190805
  Receipt Date: 20190805
  Transmission Date: 20191004
  Serious: No
  Sender: FDA-Public Use
  Company Number: US-ROCHE-2148526

PATIENT
  Sex: Female

DRUGS (4)
  1. PERJETA [Suspect]
     Active Substance: PERTUZUMAB
     Indication: HER-2 POSITIVE BREAST CANCER
     Route: 065
     Dates: start: 20180209
  2. CARBOPLATIN. [Concomitant]
     Active Substance: CARBOPLATIN
  3. CISPLATIN. [Concomitant]
     Active Substance: CISPLATIN
  4. HERCEPTIN [Suspect]
     Active Substance: TRASTUZUMAB
     Indication: HER-2 POSITIVE BREAST CANCER
     Route: 065
     Dates: start: 20180209

REACTIONS (2)
  - Breast hyperplasia [Unknown]
  - Alopecia [Not Recovered/Not Resolved]
